FAERS Safety Report 5527973-8 (Version None)
Quarter: 2007Q4

REPORT INFORMATION
  Report Type: 
  Country: None (occurrence: None)
  Receive Date: 20071123
  Receipt Date: 20071115
  Transmission Date: 20080405
  Serious: No
  Sender: FDA-Public Use
  Company Number: 20073507

PATIENT
  Sex: Female

DRUGS (1)
  1. LIORESAL [Suspect]
     Indication: MUSCLE SPASTICITY
     Dosage: 50 MCG, HOURLY, INTRATHECAL
     Route: 037

REACTIONS (8)
  - DIPLOPIA [None]
  - FEELING HOT [None]
  - MOTION SICKNESS [None]
  - MUSCLE SPASTICITY [None]
  - NAUSEA [None]
  - RETCHING [None]
  - TACHYCARDIA [None]
  - VOMITING [None]
